FAERS Safety Report 17566679 (Version 1)
Quarter: 2020Q1

REPORT INFORMATION
  Report Type: Spontaneous
  Country: JP (occurrence: JP)
  Receive Date: 20200320
  Receipt Date: 20200320
  Transmission Date: 20200409
  Serious: Yes (Life-Threatening, Other)
  Sender: FDA-Public Use
  Company Number: JP-PFIZER INC-2020117725

PATIENT
  Age: 81 Year
  Sex: Male
  Weight: 65 kg

DRUGS (9)
  1. PIMENOL 50MG [Suspect]
     Active Substance: PIRMENOL HYDROCHLORIDE
     Indication: SINUS NODE DYSFUNCTION
     Dosage: 100 MG, 2X/DAY
     Route: 048
     Dates: end: 20191004
  2. NICHIPHAGEN [Concomitant]
     Active Substance: AMMONIUM GLYCYRRHIZATE\CYSTEINE HYDROCHLORIDE\GLYCINE
  3. URSO [Concomitant]
     Active Substance: URSODIOL
  4. LEVOFLOXACIN. [Suspect]
     Active Substance: LEVOFLOXACIN
     Dosage: UNK
     Dates: start: 20191004, end: 20191005
  5. IRBESARTAN NIPRO [Concomitant]
  6. AMLODIPINE [AMLODIPINE BESILATE] [Concomitant]
     Active Substance: AMLODIPINE BESYLATE
  7. CARBAZOCHROME SULFONATE NA [Concomitant]
  8. HARVONI [Concomitant]
     Active Substance: LEDIPASVIR\SOFOSBUVIR
  9. TRANEXAMIC ACID. [Concomitant]
     Active Substance: TRANEXAMIC ACID

REACTIONS (6)
  - Pyrexia [Unknown]
  - Torsade de pointes [Unknown]
  - Electrocardiogram QT prolonged [Recovering/Resolving]
  - Ventricular fibrillation [Unknown]
  - Atrial fibrillation [Unknown]
  - Cardio-respiratory arrest [Recovered/Resolved]

NARRATIVE: CASE EVENT DATE: 20191004
